FAERS Safety Report 8041902-7 (Version None)
Quarter: 2012Q1

REPORT INFORMATION
  Report Type: 
  Country: None (occurrence: None)
  Receive Date: 20120112
  Receipt Date: 20120112
  Transmission Date: 20120608
  Serious: Yes (Other)
  Sender: FDA-Public Use
  Company Number: None

PATIENT
  Age: 56 Year
  Sex: Female
  Weight: 58.967 kg

DRUGS (4)
  1. BONIVA [Concomitant]
  2. CELEXA [Concomitant]
     Route: 048
  3. PROLIA [Suspect]
     Indication: OSTEOPOROSIS
     Dosage: 60 MG
     Route: 003
     Dates: start: 20111109, end: 20111109
  4. CALCIUM D [Concomitant]
     Route: 048

REACTIONS (1)
  - VITREOUS DETACHMENT [None]
